FAERS Safety Report 18443334 (Version 1)
Quarter: 2020Q4

REPORT INFORMATION
  Report Type: Spontaneous
  Country: FR (occurrence: FR)
  Receive Date: 20201029
  Receipt Date: 20201029
  Transmission Date: 20210114
  Serious: Yes (Hospitalization)
  Sender: FDA-Public Use
  Company Number: FR-PURDUE-USA-2020-0173270

PATIENT
  Age: 69 Year
  Sex: Female

DRUGS (8)
  1. RETACRIT                           /00928305/ [Suspect]
     Active Substance: ERYTHROPOIETIN
     Indication: ANAEMIA
     Dosage: 1 DF, WEEKLY
     Route: 058
     Dates: end: 202009
  2. ZELITREX [Suspect]
     Active Substance: VALACYCLOVIR HYDROCHLORIDE
     Indication: PROPHYLAXIS
     Dosage: 1 DF, DAILY
     Route: 048
  3. WELLVONE [Suspect]
     Active Substance: ATOVAQUONE
     Indication: PROPHYLAXIS
     Dosage: 2 DF, DAILY
     Route: 048
     Dates: end: 20200927
  4. LAROXYL [Suspect]
     Active Substance: AMITRIPTYLINE HYDROCHLORIDE
     Indication: ANXIETY
     Dosage: 5 MG, DAILY
     Route: 048
     Dates: end: 20200924
  5. VENCLYXTO [Suspect]
     Active Substance: VENETOCLAX
     Indication: LYMPHOCYTIC LYMPHOMA
     Dosage: 1 DF, DAILY
     Route: 048
     Dates: start: 20200827, end: 20200924
  6. CORTANCYL [Suspect]
     Active Substance: PREDNISONE
     Indication: LYMPHOCYTIC LYMPHOMA
     Dosage: 1 DF, DAILY
     Route: 048
     Dates: start: 20200907
  7. OXYNORMORO [Suspect]
     Active Substance: OXYCODONE HYDROCHLORIDE
     Indication: PAIN
     Dosage: 4 DF, DAILY (STRENGTH 5MG)
     Route: 048
     Dates: end: 20200924
  8. ATARAX [Suspect]
     Active Substance: HYDROXYZINE HYDROCHLORIDE
     Indication: INSOMNIA
     Dosage: 1 DF, DAILY
     Route: 048
     Dates: end: 20200924

REACTIONS (1)
  - Hepatitis cholestatic [Not Recovered/Not Resolved]

NARRATIVE: CASE EVENT DATE: 20200922
